FAERS Safety Report 5591014-7 (Version None)
Quarter: 2008Q1

REPORT INFORMATION
  Report Type: 
  Country: None (occurrence: None)
  Receive Date: 20080115
  Receipt Date: 20080107
  Transmission Date: 20080703
  Serious: Yes (Hospitalization)
  Sender: FDA-Public Use
  Company Number: JP-BAYER-200810566GPV

PATIENT
  Age: 57 Year
  Sex: Female

DRUGS (1)
  1. PROSCOPE 300 (IOPROMIDE) [Suspect]
     Indication: COMPUTERISED TOMOGRAM
     Dates: start: 20071206, end: 20071206

REACTIONS (2)
  - BLOOD PRESSURE DECREASED [None]
  - PRURITUS [None]
